FAERS Safety Report 18343957 (Version 1)
Quarter: 2020Q4

REPORT INFORMATION
  Report Type: Spontaneous
  Country: US (occurrence: US)
  Receive Date: 20201005
  Receipt Date: 20201005
  Transmission Date: 20210114
  Serious: No
  Sender: FDA-Public Use
  Company Number: US-MYLANLABS-2020M1082680

PATIENT
  Age: 73 Year
  Sex: Male

DRUGS (1)
  1. VALSARTAN TABLETS, USP [Suspect]
     Active Substance: VALSARTAN
     Indication: HYPERTENSION
     Dosage: 320 MILLIGRAM, QD
     Route: 048
     Dates: start: 20200923, end: 202009

REACTIONS (8)
  - Dysgeusia [Not Recovered/Not Resolved]
  - Abdominal discomfort [Not Recovered/Not Resolved]
  - Tension headache [Not Recovered/Not Resolved]
  - Flushing [Recovered/Resolved]
  - Poor quality product administered [Unknown]
  - Product use complaint [Not Recovered/Not Resolved]
  - Influenza like illness [Recovered/Resolved]
  - Dizziness [Not Recovered/Not Resolved]

NARRATIVE: CASE EVENT DATE: 20200923
